FAERS Safety Report 5890036-6 (Version None)
Quarter: 2008Q3

REPORT INFORMATION
  Report Type: 
  Country: None (occurrence: None)
  Receive Date: 20080919
  Receipt Date: 20080909
  Transmission Date: 20090109
  Serious: Yes (Other)
  Sender: FDA-Public Use
  Company Number: US-PFIZER INC-2008047757

PATIENT
  Sex: Male
  Weight: 93 kg

DRUGS (2)
  1. CHANTIX [Suspect]
     Indication: SMOKING CESSATION THERAPY
     Route: 048
     Dates: start: 20070801, end: 20080201
  2. PROPECIA [Concomitant]

REACTIONS (6)
  - CHORIORETINOPATHY [None]
  - IMPAIRED DRIVING ABILITY [None]
  - MYODESOPSIA [None]
  - OCULAR VASCULAR DISORDER [None]
  - RETINAL OEDEMA [None]
  - VISUAL IMPAIRMENT [None]
